FAERS Safety Report 7501413-1 (Version None)
Quarter: 2011Q2

REPORT INFORMATION
  Report Type: 
  Country: None (occurrence: None)
  Receive Date: 20110524
  Receipt Date: 20110518
  Transmission Date: 20111010
  Serious: Yes (Other)
  Sender: FDA-Public Use
  Company Number: IE-PFIZER INC-2011068013

PATIENT
  Age: 18 Month
  Sex: Male
  Weight: 26.9 kg

DRUGS (7)
  1. DEXAMETHASONE [Concomitant]
     Indication: PROPHYLACTIC CHEMOTHERAPY
     Dosage: UNK
     Route: 048
     Dates: start: 20110319
  2. ZOFRAN [Concomitant]
     Indication: PROPHYLACTIC CHEMOTHERAPY
     Dosage: 2 MG, 3X/DAY
     Route: 048
     Dates: start: 20110319
  3. LYRICA [Suspect]
     Dosage: 100 MG, 3X/DAY
     Route: 048
     Dates: start: 20110323, end: 20110326
  4. ORAMORPH SR [Concomitant]
     Indication: PROPHYLACTIC CHEMOTHERAPY
     Dosage: 5 MG, AS NEEDED
     Route: 048
     Dates: start: 20110319
  5. NEURONTIN [Concomitant]
     Indication: PAIN
     Dosage: UNK
  6. MST [Concomitant]
     Indication: PROPHYLACTIC CHEMOTHERAPY
     Dosage: 15 MG, 2X/DAY
     Route: 048
     Dates: start: 20110319
  7. G-CSF [Concomitant]
     Indication: PROPHYLACTIC CHEMOTHERAPY
     Dosage: 50 MG, UNK
     Route: 048
     Dates: start: 20110319

REACTIONS (4)
  - WRONG DRUG ADMINISTERED [None]
  - NEUTROPENIA [None]
  - WHITE BLOOD CELL COUNT DECREASED [None]
  - DRUG DISPENSING ERROR [None]
